FAERS Safety Report 8842166 (Version 1)
Quarter: 2012Q4

REPORT INFORMATION
  Report Type: Spontaneous
  Country: US (occurrence: None)
  Receive Date: 20121015
  Receipt Date: 20121015
  Transmission Date: 20130627
  Serious: Yes (Life-Threatening)
  Sender: FDA-Public Use
  Company Number: None

PATIENT
  Sex: Female
  Weight: 68 kg

DRUGS (2)
  1. CELLCEPT [Suspect]
     Indication: ORGAN TRANSPLANT
     Dosage: 1000 mg BID Po
     Route: 048
     Dates: start: 20030131
  2. MYCOPHENOLATE [Suspect]
     Dosage: 1000 mg BID PO
     Route: 048

REACTIONS (1)
  - No adverse event [None]
